FAERS Safety Report 25348765 (Version 1)
Quarter: 2025Q2

REPORT INFORMATION
  Report Type: Report from Study
  Country: BR (occurrence: BR)
  Receive Date: 20250522
  Receipt Date: 20250522
  Transmission Date: 20250716
  Serious: No
  Sender: JOHNSON AND JOHNSON
  Company Number: BR-JNJFOC-20250521296

PATIENT
  Age: 62 Year
  Sex: Male
  Weight: 76 kg

DRUGS (2)
  1. TALVEY [Suspect]
     Active Substance: TALQUETAMAB-TGVS
     Indication: Plasma cell myeloma
     Route: 058
     Dates: start: 202501
  2. TALVEY [Suspect]
     Active Substance: TALQUETAMAB-TGVS
     Route: 058

REACTIONS (7)
  - Ageusia [Recovering/Resolving]
  - Onychomadesis [Recovering/Resolving]
  - Alopecia [Recovering/Resolving]
  - Hair colour changes [Unknown]
  - Weight decreased [Not Recovered/Not Resolved]
  - Skin exfoliation [Recovering/Resolving]
  - Product prescribing error [Unknown]

NARRATIVE: CASE EVENT DATE: 20250118
